FAERS Safety Report 6187695-X (Version None)
Quarter: 2009Q2

REPORT INFORMATION
  Report Type: 
  Country: None (occurrence: None)
  Receive Date: 20090511
  Receipt Date: 20090507
  Transmission Date: 20091009
  Serious: Yes (Life-Threatening)
  Sender: FDA-Public Use
  Company Number: SP02321

PATIENT
  Age: 81 Year
  Sex: Male

DRUGS (5)
  1. VISICOL [Suspect]
     Indication: COLONOSCOPY
     Dosage: 50 GM, ORAL
     Route: 048
     Dates: start: 20090316, end: 20090316
  2. NIFEDIPINE [Suspect]
     Dosage: ORAL
     Route: 048
  3. VALSARTAN [Suspect]
     Dosage: ORAL
     Route: 048
  4. DIAZEPAM [Concomitant]
  5. ASPIRIN [Concomitant]

REACTIONS (6)
  - AREFLEXIA [None]
  - DEPRESSED LEVEL OF CONSCIOUSNESS [None]
  - HYPERPHOSPHATAEMIA [None]
  - HYPOCALCAEMIA [None]
  - MUSCULAR WEAKNESS [None]
  - TETANY [None]
